FAERS Safety Report 13871931 (Version 4)
Quarter: 2019Q4

REPORT INFORMATION
  Report Type: Report from Study
  Country: US (occurrence: US)
  Receive Date: 20170816
  Receipt Date: 20191202
  Transmission Date: 20200122
  Serious: Yes (Other)
  Sender: FDA-Public Use
  Company Number: US-TEVA-797439USA

PATIENT
  Age: 24 Year
  Sex: Female

DRUGS (1)
  1. CLARAVIS [Suspect]
     Active Substance: ISOTRETINOIN
     Dosage: 30 MILLIGRAM DAILY;
     Route: 065
     Dates: start: 20170606, end: 20170728

REACTIONS (2)
  - Unintended pregnancy [Unknown]
  - Selective abortion [Unknown]

NARRATIVE: CASE EVENT DATE: 20170808
